FAERS Safety Report 8819887 (Version 2)
Quarter: 2012Q4

REPORT INFORMATION
  Report Type: 
  Country: US (occurrence: US)
  Receive Date: 20121001
  Receipt Date: 20121126
  Transmission Date: 20130627
  Serious: Yes (Hospitalization)
  Sender: FDA-Public Use
  Company Number: US-B.I. PHARMACEUTICALS,INC./RIDGEFIELD-2012-BP-23362BP

PATIENT
  Age: 72 Year
  Sex: Female
  Weight: 88.9 kg

DRUGS (6)
  1. PRADAXA [Suspect]
     Indication: ATRIAL FIBRILLATION
     Dosage: 300 mg
     Route: 048
     Dates: start: 20111129, end: 20111202
  2. COUMADIN [Suspect]
  3. LOVENOX [Suspect]
  4. LOPRESSOR [Concomitant]
  5. PRAVACHOL [Concomitant]
  6. PREVACID [Concomitant]

REACTIONS (1)
  - Subarachnoid haemorrhage [Recovered/Resolved]
